FAERS Safety Report 6578820-7 (Version None)
Quarter: 2010Q1

REPORT INFORMATION
  Report Type: 
  Country: None (occurrence: None)
  Receive Date: 20100202
  Receipt Date: 20100120
  Transmission Date: 20100710
  Serious: Yes (Disabling)
  Sender: FDA-Public Use
  Company Number: 220001M10DZA

PATIENT
  Age: 21 Year
  Sex: Female
  Weight: 33 kg

DRUGS (5)
  1. SAIZEN [Suspect]
     Indication: CONGENITAL ANOMALY
  2. SAIZEN [Suspect]
     Indication: GROWTH HORMONE DEFICIENCY
  3. SAIZEN [Suspect]
     Indication: HYPOTHALAMO-PITUITARY DISORDER
  4. PROGYNOVA (ESTRADIOL VALERATE) [Concomitant]
  5. DUPHASTON [Concomitant]

REACTIONS (6)
  - DECREASED APPETITE [None]
  - FATIGUE [None]
  - GENERAL PHYSICAL HEALTH DETERIORATION [None]
  - HEADACHE [None]
  - PARAESTHESIA [None]
  - PYREXIA [None]
